FAERS Safety Report 24529161 (Version 1)
Quarter: 2024Q4

REPORT INFORMATION
  Report Type: Spontaneous
  Country: US (occurrence: None)
  Receive Date: 20241019
  Receipt Date: 20241019
  Transmission Date: 20250115
  Serious: No
  Sender: Public
  Company Number: None

PATIENT
  Age: 52 Year
  Sex: Male
  Weight: 95.4 kg

DRUGS (1)
  1. HIZENTRA [Suspect]
     Active Substance: HUMAN IMMUNOGLOBULIN G
     Indication: Primary immunodeficiency syndrome
     Dosage: OTHER FREQUENCY : 20G WEEKLY;?
     Route: 058
     Dates: start: 20241001, end: 20241015

REACTIONS (5)
  - Injection site rash [None]
  - Injection site warmth [None]
  - Injection site pain [None]
  - Injection site pruritus [None]
  - Diarrhoea [None]
